FAERS Safety Report 5521735-3 (Version None)
Quarter: 2007Q4

REPORT INFORMATION
  Report Type: 
  Country: None (occurrence: None)
  Receive Date: 20071120
  Receipt Date: 20071108
  Transmission Date: 20080405
  Serious: Yes (Hospitalization, Disabling, Other)
  Sender: FDA-Public Use
  Company Number: US-PURDUE-USA_2007_0028569

PATIENT
  Sex: Male

DRUGS (1)
  1. OXYCONTIN [Suspect]
     Indication: PAIN
     Dosage: 320 MG, DAILY
     Dates: start: 20010101, end: 20070413

REACTIONS (27)
  - ACIDOSIS [None]
  - ACTIVITIES OF DAILY LIVING IMPAIRED [None]
  - ANTISOCIAL BEHAVIOUR [None]
  - ANXIETY [None]
  - ARTHRALGIA [None]
  - DEPRESSION [None]
  - DIARRHOEA [None]
  - DRUG DEPENDENCE [None]
  - DRUG TOLERANCE [None]
  - ERYTHEMA [None]
  - FEELING OF DESPAIR [None]
  - GENERAL PHYSICAL HEALTH DETERIORATION [None]
  - HYPERHIDROSIS [None]
  - HYPERSOMNIA [None]
  - HYPERVENTILATION [None]
  - IMMOBILE [None]
  - INADEQUATE ANALGESIA [None]
  - INJURY [None]
  - INTENTIONAL SELF-INJURY [None]
  - MYALGIA [None]
  - NICOTINE DEPENDENCE [None]
  - PANIC REACTION [None]
  - TREMOR [None]
  - VIRAL INFECTION [None]
  - VOMITING [None]
  - WITHDRAWAL SYNDROME [None]
  - WOUND [None]
